FAERS Safety Report 15008900 (Version 1)
Quarter: 2018Q2

REPORT INFORMATION
  Report Type: Spontaneous
  Country: SK (occurrence: SK)
  Receive Date: 20180613
  Receipt Date: 20180613
  Transmission Date: 20180711
  Serious: Yes (Death, Other)
  Sender: FDA-Public Use
  Company Number: SK-BAXTER-2018BAX016724

PATIENT
  Age: 62 Year
  Sex: Male

DRUGS (10)
  1. VINCRISTINE [Suspect]
     Active Substance: VINCRISTINE
     Indication: DISEASE PROGRESSION
     Route: 042
     Dates: start: 20120514, end: 20121005
  2. ENDOXAN 1000 MG PRASOK NA INJEKCNY ROZTOK [Suspect]
     Active Substance: CYCLOPHOSPHAMIDE
     Indication: CHRONIC LYMPHOCYTIC LEUKAEMIA
     Dosage: 900 MG 1X
     Route: 042
     Dates: start: 20060224, end: 20060530
  3. ENDOXAN 1000 MG PRASOK NA INJEKCNY ROZTOK [Suspect]
     Active Substance: CYCLOPHOSPHAMIDE
     Dosage: 1200 MG 4X
     Route: 042
     Dates: start: 20060224, end: 20060530
  4. ENDOXAN 1000 MG PRASOK NA INJEKCNY ROZTOK [Suspect]
     Active Substance: CYCLOPHOSPHAMIDE
     Dosage: 1200 MG 4X
     Route: 042
     Dates: start: 20120514, end: 20121005
  5. PREDNISONE. [Suspect]
     Active Substance: PREDNISONE
     Indication: CHRONIC LYMPHOCYTIC LEUKAEMIA
     Dosage: 120 MG/DAY 5 CONSECUTIVE DAYS
     Route: 048
     Dates: start: 20060224, end: 20060530
  6. CHLORAMBUCIL [Suspect]
     Active Substance: CHLORAMBUCIL
     Indication: CHRONIC LYMPHOCYTIC LEUKAEMIA
     Dosage: 12MG/DAY
     Route: 048
     Dates: start: 20060620, end: 20120426
  7. MABTHERA [Suspect]
     Active Substance: RITUXIMAB
     Indication: CHRONIC LYMPHOCYTIC LEUKAEMIA
     Dosage: 4X900 MG
     Route: 042
     Dates: start: 20120605, end: 20121024
  8. MABTHERA [Suspect]
     Active Substance: RITUXIMAB
     Dosage: 1X700 MG
     Route: 042
  9. VINCRISTINE [Suspect]
     Active Substance: VINCRISTINE
     Indication: CHRONIC LYMPHOCYTIC LEUKAEMIA
     Route: 042
     Dates: start: 20060224, end: 20060530
  10. PREDNISONE. [Suspect]
     Active Substance: PREDNISONE
     Dosage: 100 MG/DAY 5 CONSECUTIVE DAYS
     Route: 048
     Dates: start: 20120514, end: 20121005

REACTIONS (5)
  - Progressive multifocal leukoencephalopathy [Fatal]
  - Bronchitis [Recovered/Resolved]
  - Pneumonia bacterial [Fatal]
  - Cerebrovascular accident [Recovered/Resolved with Sequelae]
  - JC virus infection [Unknown]
